FAERS Safety Report 23203219 (Version 1)
Quarter: 2023Q4

REPORT INFORMATION
  Report Type: Spontaneous
  Country: US (occurrence: US)
  Receive Date: 20231120
  Receipt Date: 20231120
  Transmission Date: 20240110
  Serious: No
  Sender: FDA-Public Use
  Company Number: US-BAUSCHBL-2023BNL011497

PATIENT
  Age: 36 Year
  Sex: Female

DRUGS (2)
  1. LUMIFY [Suspect]
     Active Substance: BRIMONIDINE TARTRATE
     Indication: Ocular hyperaemia
     Dosage: FROM 2 YEARS
     Route: 047
     Dates: start: 2021
  2. LUMIFY [Suspect]
     Active Substance: BRIMONIDINE TARTRATE
     Dosage: STARTED ON 03/NOV/2023
     Route: 047
     Dates: start: 20231103

REACTIONS (5)
  - Eye swelling [Unknown]
  - Eye pruritus [Unknown]
  - Eye pain [Unknown]
  - Eye irritation [Unknown]
  - Product quality issue [Unknown]

NARRATIVE: CASE EVENT DATE: 20231104
